FAERS Safety Report 8195510-8 (Version None)
Quarter: 2012Q1

REPORT INFORMATION
  Report Type: 
  Country: None (occurrence: None)
  Receive Date: 20120308
  Receipt Date: 20120305
  Transmission Date: 20120608
  Serious: Yes (Other)
  Sender: FDA-Public Use
  Company Number: PHHY2012NL000537

PATIENT
  Sex: Female

DRUGS (4)
  1. ZOMETA [Suspect]
     Dosage: 4 MG, PER 5 ML
     Dates: start: 20111202
  2. ZOMETA [Suspect]
     Dosage: 4 MG, PER 5 ML
     Dates: start: 20120102
  3. CHEMOTHERAPEUTICS [Concomitant]
  4. ZOMETA [Suspect]
     Indication: BREAST CANCER METASTATIC
     Dosage: 4 MG, PER 5 ML
     Dates: start: 20101011

REACTIONS (3)
  - SPINAL COMPRESSION FRACTURE [None]
  - HERNIA PAIN [None]
  - PAIN IN EXTREMITY [None]
